FAERS Safety Report 6960811-5 (Version None)
Quarter: 2010Q3

REPORT INFORMATION
  Report Type: 
  Country: None (occurrence: None)
  Receive Date: 20100901
  Receipt Date: 20100824
  Transmission Date: 20110219
  Serious: Yes (Other)
  Sender: FDA-Public Use
  Company Number: US-ROCHE-723293

PATIENT
  Sex: Female
  Weight: 71 kg

DRUGS (7)
  1. ACTEMRA [Suspect]
     Indication: RHEUMATOID ARTHRITIS
     Route: 042
     Dates: start: 20100603, end: 20100820
  2. METHOTREXATE [Concomitant]
     Indication: RHEUMATOID ARTHRITIS
     Route: 048
  3. MELOXICAM [Concomitant]
     Indication: RHEUMATOID ARTHRITIS
     Route: 048
  4. EVISTA [Concomitant]
     Indication: OSTEOPOROSIS
     Route: 048
  5. LISINOPRIL [Concomitant]
     Route: 048
  6. LEVOTHYROXINE SODIUM [Concomitant]
     Indication: HYPOTHYROIDISM
     Route: 048
  7. ZITHROMAX [Concomitant]
     Indication: BRONCHITIS
     Dosage: TDD 2 PACK
     Dates: start: 20100723

REACTIONS (5)
  - BLOOD CHOLESTEROL INCREASED [None]
  - EOSINOPHILIA [None]
  - PROTEIN TOTAL DECREASED [None]
  - RED BLOOD CELL COUNT DECREASED [None]
  - WHITE BLOOD CELL COUNT INCREASED [None]
